FAERS Safety Report 8490071-8 (Version None)
Quarter: 2012Q2

REPORT INFORMATION
  Report Type: 
  Country: None (occurrence: None)
  Receive Date: 20120626
  Receipt Date: 20120611
  Transmission Date: 20120825
  Serious: Yes (Hospitalization, Disabling, Other)
  Sender: FDA-Public Use
  Company Number: 2011MA015063

PATIENT
  Sex: Male
  Weight: 70.3075 kg

DRUGS (3)
  1. NEXIUM [Concomitant]
  2. BUPROPION HCL [Concomitant]
  3. METOCLOPRAMIDE [Suspect]
     Indication: GASTROOESOPHAGEAL REFLUX DISEASE
     Dosage: 10 MG;PO
     Route: 048
     Dates: start: 19950101, end: 20100401

REACTIONS (11)
  - EMOTIONAL DISORDER [None]
  - CHOLELITHOTOMY [None]
  - TARDIVE DYSKINESIA [None]
  - NASOPHARYNGITIS [None]
  - INFLUENZA [None]
  - CONDITION AGGRAVATED [None]
  - CATARACT OPERATION [None]
  - DEAFNESS [None]
  - GASTROOESOPHAGEAL REFLUX DISEASE [None]
  - ANKLE OPERATION [None]
  - FAMILY STRESS [None]
